FAERS Safety Report 4411447-1 (Version None)
Quarter: 2004Q2

REPORT INFORMATION
  Report Type: 
  Country: None (occurrence: None)
  Receive Date: 20040630
  Receipt Date: 20040520
  Transmission Date: 20050107
  Serious: No
  Sender: FDA-Public Use
  Company Number: 04P-163-0261464-00

PATIENT
  Age: 43 Year
  Sex: Female
  Weight: 51.7101 kg

DRUGS (12)
  1. HUMIRA [Suspect]
     Indication: RHEUMATOID ARTHRITIS
     Dosage: 40 MG, 1 IN 1 WK, SUBCUTANEOUS
     Route: 058
     Dates: start: 20031001
  2. LEFLUNOMIDE [Concomitant]
  3. ROFECOXIB [Concomitant]
  4. METHOTREXATE SODIUM [Concomitant]
  5. METAXALONE [Concomitant]
  6. LEVOTHYROXINE SODIUM [Concomitant]
  7. ESTROTEST [Concomitant]
  8. FOLIC ACID [Concomitant]
  9. OXYCODONE HCL [Concomitant]
  10. DIAZEPAM [Concomitant]
  11. SALOGEN [Concomitant]
  12. ZOLPIDEM TARTRATE [Concomitant]

REACTIONS (2)
  - TOOTHACHE [None]
  - WOUND INFECTION [None]
